FAERS Safety Report 5160778-9 (Version None)
Quarter: 2006Q4

REPORT INFORMATION
  Report Type: 
  Country: None (occurrence: None)
  Receive Date: 20060919
  Receipt Date: 20060711
  Transmission Date: 20070319
  Serious: No
  Sender: FDA-Public Use
  Company Number: BDI-008426

PATIENT
  Age: 21 Year
  Sex: Male

DRUGS (1)
  1. MULTIHANCE [Suspect]
     Dosage: 15 ML ONCE  IV
     Route: 042
     Dates: start: 20060706, end: 20060706

REACTIONS (1)
  - NAUSEA [None]
